FAERS Safety Report 5304697-3 (Version None)
Quarter: 2007Q2

REPORT INFORMATION
  Report Type: 
  Country: None (occurrence: None)
  Receive Date: 20070423
  Receipt Date: 20070413
  Transmission Date: 20071010
  Serious: Yes (Hospitalization, Other)
  Sender: FDA-Public Use
  Company Number: CA-JNJFOC-20070201122

PATIENT
  Sex: Female

DRUGS (2)
  1. REMICADE [Suspect]
  2. REMICADE [Suspect]
     Indication: ANKYLOSING SPONDYLITIS
     Dosage: AT WEEKS 0, 2, 6, THEN EVERY 8 WEEKS

REACTIONS (1)
  - LUNG NEOPLASM MALIGNANT [None]
